FAERS Safety Report 9105010 (Version 1)
Quarter: 2013Q1

REPORT INFORMATION
  Report Type: Spontaneous
  Country: IT (occurrence: IT)
  Receive Date: 20130219
  Receipt Date: 20130219
  Transmission Date: 20140127
  Serious: Yes (Other)
  Sender: FDA-Public Use
  Company Number: IT-ACCORD-016512

PATIENT
  Age: 37 Year
  Sex: Male

DRUGS (3)
  1. FINASTERIDE [Suspect]
     Indication: ALOPECIA
     Route: 048
  2. LANSOPRAZOLE [Concomitant]
     Indication: GASTROOESOPHAGEAL REFLUX DISEASE
     Route: 048
  3. BROMAZEPAM [Concomitant]
     Indication: GENERALISED ANXIETY DISORDER

REACTIONS (1)
  - Azoospermia [Recovering/Resolving]
